FAERS Safety Report 6543518-8 (Version None)
Quarter: 2010Q1

REPORT INFORMATION
  Report Type: 
  Country: None (occurrence: None)
  Receive Date: 20100120
  Receipt Date: 20100118
  Transmission Date: 20100710
  Serious: Yes (Hospitalization)
  Sender: FDA-Public Use
  Company Number: B0626613A

PATIENT
  Age: 41 Year
  Sex: Female

DRUGS (4)
  1. AUGMENTIN [Suspect]
     Indication: TONSILLITIS
     Route: 048
     Dates: start: 20081006, end: 20081006
  2. ACETAMINOPHEN AND CODEINE PHOSPHATE [Suspect]
     Indication: TONSILLITIS
     Route: 048
     Dates: start: 20081006, end: 20081006
  3. RABEPRAZOLE SODIUM [Concomitant]
     Indication: DRUG USE FOR UNKNOWN INDICATION
     Route: 065
  4. SERESTA [Concomitant]
     Indication: DRUG USE FOR UNKNOWN INDICATION
     Route: 065

REACTIONS (5)
  - CARDIOVASCULAR DISORDER [None]
  - DYSPHAGIA [None]
  - DYSPNOEA [None]
  - PRURITUS GENERALISED [None]
  - URTICARIA [None]
